FAERS Safety Report 7633405-6 (Version None)
Quarter: 2011Q3

REPORT INFORMATION
  Report Type: 
  Country: None (occurrence: None)
  Receive Date: 20110725
  Receipt Date: 20110106
  Transmission Date: 20111222
  Serious: Yes (Hospitalization)
  Sender: FDA-Public Use
  Company Number: US-BRISTOL-MYERS SQUIBB COMPANY-15474299

PATIENT
  Age: 38 Year
  Sex: Female

DRUGS (6)
  1. VITAMIN D [Concomitant]
  2. ZOFRAN [Concomitant]
  3. CALCIUM CARBONATE [Concomitant]
  4. PREDNISONE [Concomitant]
  5. SPRYCEL [Suspect]
     Indication: CHRONIC MYELOID LEUKAEMIA
  6. COMPAZINE [Concomitant]

REACTIONS (1)
  - DERMATITIS CONTACT [None]
